FAERS Safety Report 9215173 (Version 1)
Quarter: 2013Q2

REPORT INFORMATION
  Report Type: Report from Study
  Country: SE (occurrence: SE)
  Receive Date: 20130405
  Receipt Date: 20130405
  Transmission Date: 20140414
  Serious: Yes (Other)
  Sender: FDA-Public Use
  Company Number: SE-UCBSA-082142

PATIENT
  Age: 43 Year
  Sex: Female

DRUGS (2)
  1. CIMZIA [Suspect]
     Indication: RHEUMATOID ARTHRITIS
     Dosage: 200, 200 MG
     Route: 058
     Dates: start: 20121016, end: 20130318
  2. METHOTREXATE [Suspect]
     Dosage: 15, 15 MG
     Dates: start: 20120901

REACTIONS (2)
  - Herpes zoster [Recovered/Resolved]
  - Thrombocytopenia [Recovered/Resolved]
